FAERS Safety Report 10078504 (Version 5)
Quarter: 2014Q2

REPORT INFORMATION
  Report Type: Report from Study
  Country: US (occurrence: US)
  Receive Date: 20140415
  Receipt Date: 20140627
  Transmission Date: 20141212
  Serious: Yes (Hospitalization)
  Sender: FDA-Public Use
  Company Number: US-JNJFOC-20140309358

PATIENT
  Age: 71 Year
  Sex: Female
  Weight: 71.22 kg

DRUGS (7)
  1. STELARA [Suspect]
     Indication: PSORIASIS
     Dosage: DRUG STARTED 3 OR 4 YEARS AGO
     Route: 058
     Dates: start: 200906, end: 20130820
  2. METOPROLOL [Concomitant]
     Indication: HYPERTENSION
     Route: 048
  3. LEVOTHYROXINE [Concomitant]
     Indication: HYPOTHYROIDISM
     Dosage: 1 TABLET ON AN EMPTY STOMACH
     Route: 048
  4. COENZYME Q10 [Concomitant]
     Dosage: WITH MEAL
     Route: 048
  5. FISH OIL [Concomitant]
     Route: 065
  6. CINNAMON [Concomitant]
     Route: 065
  7. MATURE MULTIVITAMINS [Concomitant]
     Route: 048

REACTIONS (1)
  - Lung adenocarcinoma stage 0 [Not Recovered/Not Resolved]
